FAERS Safety Report 25632849 (Version 1)
Quarter: 2025Q3

REPORT INFORMATION
  Report Type: Spontaneous
  Country: US (occurrence: US)
  Receive Date: 20250801
  Receipt Date: 20250801
  Transmission Date: 20251021
  Serious: No
  Sender: GRIFOLS
  Company Number: US-IGSA-BIG0033817

PATIENT
  Sex: Female
  Weight: 90.703 kg

DRUGS (32)
  1. GAMUNEX-C [Suspect]
     Active Substance: HUMAN IMMUNOGLOBULIN G
     Indication: Product used for unknown indication
  2. DUPIXENT [Suspect]
     Active Substance: DUPILUMAB
     Indication: Asthma
     Route: 058
     Dates: start: 2024
  3. DUPIXENT [Suspect]
     Active Substance: DUPILUMAB
     Dosage: 300 MILLIGRAM, Q.O.WK.
     Route: 058
     Dates: start: 2024
  4. XHANCE [Concomitant]
     Active Substance: FLUTICASONE PROPIONATE
  5. MELOXICAM [Concomitant]
     Active Substance: MELOXICAM
  6. CYCLOBENZAPRINE [Concomitant]
     Active Substance: CYCLOBENZAPRINE
  7. CLARITHROMYCIN [Concomitant]
     Active Substance: CLARITHROMYCIN
  8. PREDNISONE [Concomitant]
     Active Substance: PREDNISONE
  9. DIPHENHYDRAMINE HYDROCHLORIDE [Concomitant]
     Active Substance: DIPHENHYDRAMINE HYDROCHLORIDE
  10. PLAQUENIL [Concomitant]
     Active Substance: HYDROXYCHLOROQUINE SULFATE
  11. MUPIROCIN [Concomitant]
     Active Substance: MUPIROCIN
  12. SODIUM CHLORIDE [Concomitant]
     Active Substance: SODIUM CHLORIDE
  13. COPPER [Concomitant]
     Active Substance: COPPER
  14. RIBOFLAVIN [Concomitant]
     Active Substance: RIBOFLAVIN
  15. EPINEPHRINE [Concomitant]
     Active Substance: EPINEPHRINE
  16. LIDOCAINE [Concomitant]
     Active Substance: LIDOCAINE
  17. ADVAIR HFA [Concomitant]
     Active Substance: FLUTICASONE PROPIONATE\SALMETEROL XINAFOATE
  18. FLUTICASONE PROPIONATE AND SALMETEROL [Concomitant]
     Active Substance: FLUTICASONE PROPIONATE\SALMETEROL XINAFOATE
  19. MENATETRENONE [Concomitant]
     Active Substance: MENATETRENONE
  20. SELENIUM [Concomitant]
     Active Substance: SELENIUM
  21. AMOXICILLIN\CLAVULANATE POTASSIUM [Concomitant]
     Active Substance: AMOXICILLIN\CLAVULANATE POTASSIUM
  22. NATTOVENA [Concomitant]
  23. IBUPROFEN [Concomitant]
     Active Substance: IBUPROFEN
  24. CYCLOBENZAPRINE HYDROCHLORIDE [Concomitant]
     Active Substance: CYCLOBENZAPRINE HYDROCHLORIDE
  25. DOXYCYCLINE HYCLATE [Concomitant]
     Active Substance: DOXYCYCLINE HYCLATE
  26. ACETAMINOPHEN [Concomitant]
     Active Substance: ACETAMINOPHEN
  27. .ALPHA.-TOCOPHEROL [Concomitant]
     Active Substance: .ALPHA.-TOCOPHEROL
  28. HEPARIN [Concomitant]
     Active Substance: HEPARIN SODIUM
  29. VITAMIN A [Concomitant]
     Active Substance: VITAMIN A
  30. SODIUM CHLORIDE [Concomitant]
     Active Substance: SODIUM CHLORIDE
  31. VALACYCLOVIR HYDROCHLORIDE [Concomitant]
     Active Substance: VALACYCLOVIR HYDROCHLORIDE
  32. VITAMINS [Concomitant]
     Active Substance: VITAMINS

REACTIONS (4)
  - SARS-CoV-2 test positive [Unknown]
  - Nasal congestion [Unknown]
  - Musculoskeletal discomfort [Unknown]
  - Headache [Unknown]

NARRATIVE: CASE EVENT DATE: 20240101
